FAERS Safety Report 24676903 (Version 2)
Quarter: 2024Q4

REPORT INFORMATION
  Report Type: Spontaneous
  Country: RO (occurrence: RO)
  Receive Date: 20241128
  Receipt Date: 20241213
  Transmission Date: 20250115
  Serious: Yes (Hospitalization)
  Sender: ABBVIE
  Company Number: RO-RICHTER-2024-GR-013214

PATIENT
  Age: 57 Year
  Sex: Female

DRUGS (6)
  1. CARIPRAZINE [Suspect]
     Active Substance: CARIPRAZINE
     Indication: Schizophrenia
     Dosage: 3 MG PER DAY?LAST ADMIN DATE:2024
     Route: 048
     Dates: start: 202403
  2. CARIPRAZINE [Suspect]
     Active Substance: CARIPRAZINE
     Indication: Schizophrenia
     Dosage: 1.5 MG PER DAY
     Route: 048
     Dates: start: 202308, end: 2024
  3. CLOZAPINE [Concomitant]
     Active Substance: CLOZAPINE
     Indication: Product used for unknown indication
     Dosage: PER DAY
     Dates: start: 2024
  4. CLOZAPINE [Concomitant]
     Active Substance: CLOZAPINE
     Indication: Product used for unknown indication
     Dates: start: 201805
  5. CLOZAPINE [Concomitant]
     Active Substance: CLOZAPINE
     Indication: Product used for unknown indication
     Dosage: PER DAY
     Dates: start: 202308, end: 2024
  6. Convulex [Concomitant]
     Indication: Product used for unknown indication
     Dosage: 600 MG/DAY
     Dates: start: 202308

REACTIONS (1)
  - Iron deficiency anaemia [Unknown]

NARRATIVE: CASE EVENT DATE: 20241001
